FAERS Safety Report 9223156 (Version 2)
Quarter: 2013Q2

REPORT INFORMATION
  Report Type: Report from Study
  Country: GB (occurrence: GB)
  Receive Date: 20130410
  Receipt Date: 20130619
  Transmission Date: 20140414
  Serious: Yes (Death, Other)
  Sender: FDA-Public Use
  Company Number: GB-ROCHE-1210454

PATIENT
  Age: 74 Year
  Sex: Male

DRUGS (2)
  1. ALTEPLASE [Suspect]
     Indication: ISCHAEMIC STROKE
     Route: 042
  2. CLOPIDOGREL [Concomitant]

REACTIONS (3)
  - Ischaemic stroke [Fatal]
  - Coma [Unknown]
  - Hemiparesis [Unknown]
